FAERS Safety Report 8564289-X (Version None)
Quarter: 2012Q3

REPORT INFORMATION
  Report Type: 
  Country: None (occurrence: None)
  Receive Date: 20120803
  Receipt Date: 20120731
  Transmission Date: 20120928
  Serious: Yes (Hospitalization)
  Sender: FDA-Public Use
  Company Number: FR-SANOFI-AVENTIS-2012SA054393

PATIENT
  Age: 72 Year
  Sex: Male

DRUGS (11)
  1. NEXIUM [Concomitant]
     Route: 048
     Dates: start: 20120202, end: 20120601
  2. LANTUS [Concomitant]
     Route: 058
     Dates: start: 20040101
  3. LASIX [Suspect]
     Route: 048
     Dates: end: 20120701
  4. LASIX [Suspect]
     Route: 048
     Dates: start: 20120701
  5. ULORIC [Suspect]
     Route: 048
     Dates: start: 20120227, end: 20120427
  6. LEVOTHYROXINE SODIUM [Concomitant]
     Route: 048
     Dates: start: 20120227
  7. PLAVIX [Concomitant]
     Route: 048
     Dates: start: 20120202
  8. LASIX [Suspect]
     Route: 048
     Dates: start: 20120202, end: 20120427
  9. CORDARONE [Suspect]
     Route: 048
     Dates: start: 20120202, end: 20120427
  10. NOVORAPID [Concomitant]
     Route: 058
     Dates: start: 20120202
  11. ROSUVASTATIN [Concomitant]
     Route: 048
     Dates: start: 20120202

REACTIONS (3)
  - RENAL FAILURE ACUTE [None]
  - PURPURA [None]
  - VASCULITIS [None]
